FAERS Safety Report 4541008-5 (Version None)
Quarter: 2004Q4

REPORT INFORMATION
  Report Type: 
  Country: None (occurrence: None)
  Receive Date: 20041228
  Receipt Date: 20041221
  Transmission Date: 20050328
  Serious: Yes (Hospitalization, Disabling, Other)
  Sender: FDA-Public Use
  Company Number: 200410492BFR

PATIENT
  Age: 35 Year
  Sex: Male
  Weight: 90 kg

DRUGS (8)
  1. MOXIFLOXACIN HYDROCHLORIDE [Suspect]
     Indication: BONE TUBERCULOSIS
     Dosage: 400 MG, TOTAL DAILY, ORAL
     Route: 048
     Dates: start: 20040611, end: 20040916
  2. MYAMBUTOL [Suspect]
     Indication: BONE TUBERCULOSIS
     Dosage: 1600 MG, TOTAL DAILY, ORAL
     Route: 048
     Dates: start: 20040123, end: 20040513
  3. DEXAMBUTOL (ETHAMBUTOL DIHYDROCHLORIDE) [Suspect]
     Indication: BONE TUBERCULOSIS
     Dosage: 1750 MG, TOTAL DAILY, ORAL
     Route: 048
     Dates: start: 20040611, end: 20040828
  4. PIRILENE [Concomitant]
  5. RIMIFON [Concomitant]
  6. RIFADIN [Concomitant]
  7. VITAMIN B1 AND B6 [Concomitant]
  8. VITAMINE PP [Concomitant]

REACTIONS (1)
  - OPTIC NEURITIS RETROBULBAR [None]
